FAERS Safety Report 6731775-4 (Version None)
Quarter: 2010Q2

REPORT INFORMATION
  Report Type: 
  Country: None (occurrence: None)
  Receive Date: 20100519
  Receipt Date: 20100507
  Transmission Date: 20101027
  Serious: Yes (Other)
  Sender: FDA-Public Use
  Company Number: BR-PFIZER INC-2010043949

PATIENT
  Sex: Male

DRUGS (1)
  1. SUTENT [Suspect]
     Dosage: 50 MG, UNK
     Route: 048

REACTIONS (10)
  - ABASIA [None]
  - BLOOD AMYLASE ABNORMAL [None]
  - DIARRHOEA [None]
  - FEELING ABNORMAL [None]
  - LIPASE ABNORMAL [None]
  - ORAL PAIN [None]
  - PAIN IN EXTREMITY [None]
  - PYREXIA [None]
  - STOMATITIS [None]
  - WEIGHT DECREASED [None]
